FAERS Safety Report 17472567 (Version 2)
Quarter: 2020Q2

REPORT INFORMATION
  Report Type: Spontaneous
  Country: US (occurrence: US)
  Receive Date: 20200228
  Receipt Date: 20200430
  Transmission Date: 20200713
  Serious: No
  Sender: FDA-Public Use
  Company Number: US-FRESENIUS KABI-FK202001930

PATIENT
  Age: 72 Year
  Sex: Female

DRUGS (8)
  1. DEXAMETHASONE SODIUM PHOSPHATE INJECTION, USP [Suspect]
     Active Substance: DEXAMETHASONE SODIUM PHOSPHATE
     Indication: SWELLING
  2. XYLOCAINE-MPF [Suspect]
     Active Substance: LIDOCAINE HYDROCHLORIDE
     Indication: SWELLING
  3. MIDAZOLAM HYDROCHLORIDE. [Suspect]
     Active Substance: MIDAZOLAM HYDROCHLORIDE
     Indication: SEDATIVE THERAPY
     Dosage: TYPICALLY USE 2 MG
     Route: 042
     Dates: start: 20200213, end: 20200213
  4. DEXAMETHASONE SODIUM PHOSPHATE INJECTION, USP [Suspect]
     Active Substance: DEXAMETHASONE SODIUM PHOSPHATE
     Indication: EPIDURAL ANAESTHESIA
     Dosage: TYPICALLY USE 10 TO 20 MG
     Route: 050
     Dates: start: 20200213, end: 20200213
  5. IOHEXOL [Suspect]
     Active Substance: IOHEXOL
     Indication: EPIDURAL ANAESTHESIA
     Dosage: TYPICALLY 1 TO 2 CC`S
     Route: 050
     Dates: start: 20200213, end: 20200213
  6. LIDOCAINE HYDROCHLORIDE. [Suspect]
     Active Substance: LIDOCAINE HYDROCHLORIDE
     Indication: LOCAL ANAESTHESIA
     Dosage: TYPICALLY USE 1 CC
     Route: 023
     Dates: start: 20200213, end: 20200213
  7. IOHEXOL [Suspect]
     Active Substance: IOHEXOL
     Indication: SWELLING
  8. XYLOCAINE-MPF [Suspect]
     Active Substance: LIDOCAINE HYDROCHLORIDE
     Indication: EPIDURAL ANAESTHESIA
     Dosage: TYPICALLY USE 2 CC`S
     Route: 050
     Dates: start: 20200213, end: 20200213

REACTIONS (4)
  - Feeling abnormal [Recovered/Resolved]
  - Arthralgia [Recovered/Resolved]
  - Intentional product use issue [Recovered/Resolved]
  - Injection site pain [Recovered/Resolved]

NARRATIVE: CASE EVENT DATE: 20200213
